FAERS Safety Report 12861171 (Version 1)
Quarter: 2016Q4

REPORT INFORMATION
  Report Type: Spontaneous
  Country: US (occurrence: US)
  Receive Date: 20161019
  Receipt Date: 20161019
  Transmission Date: 20170207
  Serious: No
  Sender: FDA-Public Use
  Company Number: US-BAYER-2016-147093

PATIENT
  Age: 81 Year
  Sex: Female
  Weight: 53.61 kg

DRUGS (10)
  1. ONE A DAY WOMEN^S PETITES [Suspect]
     Active Substance: MINERALS\VITAMINS
     Indication: VITAMIN SUPPLEMENTATION
     Dosage: 2 DF, QD
     Route: 048
  2. CITRACAL PETITES [Concomitant]
     Active Substance: CALCIUM CITRATE
  3. BABY ASPIRIN [Concomitant]
     Active Substance: ASPIRIN
  4. VITAMIN D [Concomitant]
     Active Substance: CHOLECALCIFEROL
  5. OXYCONTIN [Concomitant]
     Active Substance: OXYCODONE HYDROCHLORIDE
  6. ALEVE [Suspect]
     Active Substance: NAPROXEN SODIUM
     Indication: PAIN
     Dosage: 1 DF, UNK, 3-4 TIMES A WEEK FOR YEAR
     Route: 048
  7. SYNTHROID [Concomitant]
     Active Substance: LEVOTHYROXINE SODIUM
  8. DIAZEPAM. [Concomitant]
     Active Substance: DIAZEPAM
  9. ONE A DAY WOMEN^S [Suspect]
     Active Substance: MINERALS\VITAMINS
     Indication: VITAMIN SUPPLEMENTATION
     Dosage: 1 DF, QD
     Route: 048
  10. BACLOFEN. [Concomitant]
     Active Substance: BACLOFEN

REACTIONS (4)
  - Throat irritation [None]
  - Wrong technique in product usage process [None]
  - Product difficult to swallow [None]
  - Drug ineffective [None]

NARRATIVE: CASE EVENT DATE: 20160925
